FAERS Safety Report 15956178 (Version 1)
Quarter: 2019Q1

REPORT INFORMATION
  Report Type: Spontaneous
  Country: US (occurrence: US)
  Receive Date: 20190213
  Receipt Date: 20190213
  Transmission Date: 20190417
  Serious: Yes (Other)
  Sender: FDA-Public Use
  Company Number: US-BAYER-2019-026602

PATIENT
  Age: 61 Year
  Sex: Male

DRUGS (17)
  1. TYSABRI [Suspect]
     Active Substance: NATALIZUMAB
     Dosage: UNK
  2. FLOMAX [Concomitant]
     Active Substance: TAMSULOSIN HYDROCHLORIDE
     Dosage: UNK
  3. BETASERON [Suspect]
     Active Substance: INTERFERON BETA-1B
     Indication: MULTIPLE SCLEROSIS
  4. MODAFINIL. [Concomitant]
     Active Substance: MODAFINIL
     Dosage: UNK
  5. BACLOFEN. [Concomitant]
     Active Substance: BACLOFEN
     Dosage: UNK
  6. CICLOPIROX. [Concomitant]
     Active Substance: CICLOPIROX
     Dosage: 8 %
  7. DONEPEZIL. [Concomitant]
     Active Substance: DONEPEZIL
  8. TOCOPHEROL [Concomitant]
     Active Substance: TOCOPHEROL
  9. ZOLPIDEM [Concomitant]
     Active Substance: ZOLPIDEM\ZOLPIDEM TARTRATE
     Dosage: UNK
  10. CHOLECALCIFEROL [Concomitant]
     Active Substance: CHOLECALCIFEROL
  11. FINGOLIMOD HCL [Concomitant]
     Active Substance: FINGOLIMOD HYDROCHLORIDE
     Dosage: UNK
  12. ARICEPT [Concomitant]
     Active Substance: DONEPEZIL HYDROCHLORIDE
  13. COPAXONE [Suspect]
     Active Substance: GLATIRAMER ACETATE
     Dosage: 10 MG, BID
     Dates: start: 20151028
  14. CALCIUM CARBONATE. [Concomitant]
     Active Substance: CALCIUM CARBONATE
  15. AMPYRA [Suspect]
     Active Substance: DALFAMPRIDINE
     Dosage: 10 MG
  16. KETOCONAZOLE. [Concomitant]
     Active Substance: KETOCONAZOLE
     Dosage: 2 %
  17. VALSARTAN. [Concomitant]
     Active Substance: VALSARTAN
     Dosage: UNK

REACTIONS (15)
  - Demyelination [None]
  - Cervical spinal stenosis [None]
  - Myelomalacia [None]
  - Muscle spasticity [None]
  - Visual impairment [None]
  - Secondary progressive multiple sclerosis [None]
  - Muscular weakness [None]
  - Hyporeflexia [None]
  - Decreased vibratory sense [None]
  - Urinary incontinence [None]
  - Vertebral foraminal stenosis [None]
  - Basal ganglia infarction [None]
  - White matter lesion [None]
  - Multiple sclerosis relapse [None]
  - Vision blurred [None]
